FAERS Safety Report 14547351 (Version 2)
Quarter: 2018Q1

REPORT INFORMATION
  Report Type: Report from Study
  Country: MX (occurrence: MX)
  Receive Date: 20180219
  Receipt Date: 20180223
  Transmission Date: 20180509
  Serious: Yes (Death, Hospitalization, Other)
  Sender: FDA-Public Use
  Company Number: PHHY2018MX020549

PATIENT
  Age: 47 Year
  Sex: Male

DRUGS (1)
  1. PKC412 [Suspect]
     Active Substance: MIDOSTAURIN
     Indication: ACUTE MYELOID LEUKAEMIA
     Dosage: 50 MG, Q12H
     Route: 048
     Dates: start: 20170707, end: 201712

REACTIONS (9)
  - Neutropenic colitis [Fatal]
  - Infection [Unknown]
  - Acute myeloid leukaemia recurrent [Fatal]
  - Multiple organ dysfunction syndrome [Fatal]
  - Pyrexia [Unknown]
  - Pseudomonas infection [Fatal]
  - Neutropenia [Unknown]
  - Malignant neoplasm progression [Fatal]
  - Septic shock [Fatal]

NARRATIVE: CASE EVENT DATE: 201712
